FAERS Safety Report 9230149 (Version 2)
Quarter: 2013Q2

REPORT INFORMATION
  Report Type: Spontaneous
  Country: US (occurrence: US)
  Receive Date: 20130415
  Receipt Date: 20130516
  Transmission Date: 20140414
  Serious: Yes (Life-Threatening, Hospitalization, Disabling)
  Sender: FDA-Public Use
  Company Number: US-BAYER-2013-046998

PATIENT
  Age: 41 Year
  Sex: Female

DRUGS (11)
  1. YAZ [Suspect]
     Indication: MENORRHAGIA
  2. YASMIN [Suspect]
  3. BEYAZ [Suspect]
  4. GIANVI [Suspect]
  5. OCELLA [Suspect]
  6. ELECTROLYTE [Concomitant]
  7. ANTIBIOTICS [Concomitant]
  8. IBUPROFEN [Concomitant]
     Indication: ABDOMINAL PAIN
  9. TYLENOL [Concomitant]
     Indication: MIGRAINE
  10. NEXIUM [Concomitant]
  11. PRILOSEC [Concomitant]

REACTIONS (8)
  - Pulmonary embolism [None]
  - Injury [None]
  - Pain [None]
  - General physical health deterioration [None]
  - Emotional distress [None]
  - Anxiety [None]
  - Anhedonia [None]
  - Pain [None]
